FAERS Safety Report 6436365-9 (Version None)
Quarter: 2009Q4

REPORT INFORMATION
  Report Type: 
  Country: None (occurrence: None)
  Receive Date: 20091111
  Receipt Date: 20091030
  Transmission Date: 20100525
  Serious: Yes (Other)
  Sender: FDA-Public Use
  Company Number: PHHY2009DE47778

PATIENT
  Sex: Female

DRUGS (1)
  1. ESTRADERM [Suspect]
     Dosage: 50 UG/ 24H
     Route: 062
     Dates: start: 20091028

REACTIONS (3)
  - DYSPNOEA [None]
  - MICTURITION URGENCY [None]
  - TACHYCARDIA [None]
